FAERS Safety Report 19796280 (Version 3)
Quarter: 2021Q3

REPORT INFORMATION
  Report Type: Spontaneous
  Country: US (occurrence: US)
  Receive Date: 20210907
  Receipt Date: 20210929
  Transmission Date: 20211014
  Serious: No
  Sender: FDA-Public Use
  Company Number: US-LUPIN PHARMACEUTICALS INC.-2021-16438

PATIENT
  Age: 8 Year
  Sex: Female

DRUGS (1)
  1. CEFDINIR FOR ORAL SUSPENSION USP 250 MG/5 ML [Suspect]
     Active Substance: CEFDINIR
     Indication: PRODUCT USED FOR UNKNOWN INDICATION
     Dosage: UNK, QD (ABOUT 21CC OF MEDICATION WAS CONSUMED)
     Route: 048
     Dates: start: 202108

REACTIONS (4)
  - No adverse event [Unknown]
  - Poor quality product administered [Unknown]
  - Product dose omission issue [Unknown]
  - Product contamination physical [Unknown]

NARRATIVE: CASE EVENT DATE: 202108
